FAERS Safety Report 14851355 (Version 1)
Quarter: 2018Q2

REPORT INFORMATION
  Report Type: Spontaneous
  Country: US (occurrence: US)
  Receive Date: 20180507
  Receipt Date: 20180507
  Transmission Date: 20180711
  Serious: Yes (Other)
  Sender: FDA-Public Use
  Company Number: US-WEST-WARD PHARMACEUTICALS CORP.-US-H14001-18-03593

PATIENT
  Age: 40 Year
  Sex: Female

DRUGS (7)
  1. PROPOFOL. [Concomitant]
     Active Substance: PROPOFOL
     Indication: CAESAREAN SECTION
     Route: 065
  2. MORPHINE [Suspect]
     Active Substance: MORPHINE
     Indication: CAESAREAN SECTION
     Route: 065
  3. CLINDAMYCIN. [Concomitant]
     Active Substance: CLINDAMYCIN
     Indication: CAESAREAN SECTION
     Route: 065
  4. ROCURONIUM [Concomitant]
     Active Substance: ROCURONIUM BROMIDE
     Indication: CAESAREAN SECTION
     Route: 065
  5. FENTANYL. [Suspect]
     Active Substance: FENTANYL
     Indication: CAESAREAN SECTION
     Route: 065
  6. BUPIVACAINE. [Concomitant]
     Active Substance: BUPIVACAINE
     Indication: CAESAREAN SECTION
     Route: 065
  7. OXYTOCIN. [Suspect]
     Active Substance: OXYTOCIN
     Indication: CAESAREAN SECTION
     Route: 042

REACTIONS (3)
  - Maternal exposure during delivery [Recovered/Resolved]
  - Hypoaesthesia [Unknown]
  - Anaphylactic reaction [Recovered/Resolved]
